FAERS Safety Report 9108164 (Version 1)
Quarter: 2013Q1

REPORT INFORMATION
  Report Type: Spontaneous
  Country: NL (occurrence: NL)
  Receive Date: 20130221
  Receipt Date: 20130221
  Transmission Date: 20140127
  Serious: No
  Sender: FDA-Public Use
  Company Number: NL-JNJFOC-20130203279

PATIENT
  Age: 33 Year
  Sex: Male

DRUGS (6)
  1. DUROGESIC [Suspect]
     Indication: PAIN
     Dates: start: 20130118
  2. PERINDOPRIL [Concomitant]
  3. CHLORHEXIDINE TOPICAL [Concomitant]
     Route: 065
  4. ALGINIC ACID [Concomitant]
     Route: 065
  5. KETOCONAZOLE [Concomitant]
     Route: 065
  6. OMEPRAZOLE [Concomitant]
     Route: 065

REACTIONS (2)
  - Pruritus [Unknown]
  - Drug administered at inappropriate site [Unknown]
